FAERS Safety Report 4383771-2 (Version None)
Quarter: 2004Q2

REPORT INFORMATION
  Report Type: 
  Country: None (occurrence: None)
  Receive Date: 20040623
  Receipt Date: 20040618
  Transmission Date: 20050107
  Serious: Yes (Death, Hospitalization)
  Sender: FDA-Public Use
  Company Number: FR-MERCK-0406FRA00085

PATIENT
  Age: 86 Year
  Sex: Female
  Weight: 85 kg

DRUGS (5)
  1. AMOXICILLIN AND CLAVULANATE POTASSIUM [Concomitant]
     Indication: LUNG DISORDER
     Route: 042
     Dates: end: 20040401
  2. FLUCONAZOLE [Concomitant]
     Indication: ORAL CANDIDIASIS
     Route: 048
     Dates: end: 20040401
  3. FUROSEMIDE [Concomitant]
     Indication: HYPERTENSION
     Route: 048
     Dates: end: 20040401
  4. NOROXIN [Suspect]
     Indication: URINARY TRACT INFECTION
     Route: 048
     Dates: end: 20040401
  5. URAPIDIL [Concomitant]
     Indication: HYPERTENSION
     Route: 048
     Dates: end: 20040401

REACTIONS (2)
  - DEATH [None]
  - THROMBOCYTOPENIA [None]
